FAERS Safety Report 8778351 (Version 2)
Quarter: 2012Q4

REPORT INFORMATION
  Report Type: 
  Country: PL (occurrence: PL)
  Receive Date: 20120912
  Receipt Date: 20121108
  Transmission Date: 20130627
  Serious: No
  Sender: FDA-Public Use
  Company Number: PL-ROCHE-1118345

PATIENT
  Sex: Male
  Weight: 72 kg

DRUGS (4)
  1. XELODA [Suspect]
     Indication: COLORECTAL CANCER
     Route: 048
     Dates: start: 20120704
  2. OXALIPLATIN [Suspect]
     Indication: COLORECTAL CANCER
     Route: 042
     Dates: start: 20120704
  3. ONDANSETRON [Concomitant]
     Indication: VOMITING
     Route: 042
     Dates: start: 20120704
  4. DEXAMETHASONE [Concomitant]
     Indication: VOMITING
     Route: 042
     Dates: start: 20120704

REACTIONS (1)
  - Blindness transient [Recovered/Resolved]
